FAERS Safety Report 5909204-X (Version None)
Quarter: 2008Q4

REPORT INFORMATION
  Report Type: 
  Country: None (occurrence: None)
  Receive Date: 20081006
  Receipt Date: 20080929
  Transmission Date: 20090506
  Serious: Yes (Other)
  Sender: FDA-Public Use
  Company Number: PHHY2008CA23243

PATIENT

DRUGS (2)
  1. DIOVAN [Suspect]
     Dosage: 320 MG, QD
  2. BETA BLOCKING AGENTS [Concomitant]

REACTIONS (2)
  - BLOOD PRESSURE ABNORMAL [None]
  - GOUT [None]
